FAERS Safety Report 4876855-3 (Version None)
Quarter: 2006Q1

REPORT INFORMATION
  Report Type: 
  Country: None (occurrence: None)
  Receive Date: 20060110
  Receipt Date: 20060106
  Transmission Date: 20060701
  Serious: Yes (Death, Hospitalization)
  Sender: FDA-Public Use
  Company Number: FR-BRISTOL-MYERS SQUIBB COMPANY-13239611

PATIENT
  Age: 56 Year
  Sex: Male

DRUGS (3)
  1. CETUXIMAB [Suspect]
     Indication: SQUAMOUS CELL CARCINOMA
     Route: 041
     Dates: start: 20050726
  2. CISPLATIN [Suspect]
     Indication: SQUAMOUS CELL CARCINOMA
     Route: 042
     Dates: start: 20050726
  3. FLUOROURACIL [Suspect]
     Indication: SQUAMOUS CELL CARCINOMA
     Route: 042
     Dates: start: 20050726

REACTIONS (3)
  - CONVULSION [None]
  - DEATH [None]
  - RENAL FAILURE ACUTE [None]
